FAERS Safety Report 10262721 (Version 2)
Quarter: 2014Q2

REPORT INFORMATION
  Report Type: Report from Study
  Country: US (occurrence: US)
  Receive Date: 20140626
  Receipt Date: 20140626
  Transmission Date: 20141212
  Serious: Yes (Death)
  Sender: FDA-Public Use
  Company Number: US-MYLANLABS-2013S1013084

PATIENT
  Age: 81 Year
  Sex: Male
  Weight: 93.44 kg

DRUGS (9)
  1. CLOZAPINE TABLETS [Suspect]
     Route: 048
  2. CLOZAPINE TABLETS [Suspect]
     Route: 048
  3. METOPROLOL [Concomitant]
  4. ASPIRIN [Concomitant]
  5. EXELON [Concomitant]
  6. SIMVASTATIN [Concomitant]
  7. ZOLOFT [Concomitant]
  8. SULFAMETHOXAZOLE + TRIMETHOPRIM [Concomitant]
  9. KEPPRA [Concomitant]
     Route: 048

REACTIONS (1)
  - Death [Fatal]
